FAERS Safety Report 6021969-8 (Version None)
Quarter: 2008Q4

REPORT INFORMATION
  Report Type: 
  Country: None (occurrence: None)
  Receive Date: 20081229
  Receipt Date: 20081218
  Transmission Date: 20090506
  Serious: Yes (Hospitalization)
  Sender: FDA-Public Use
  Company Number: US-ASTRAZENECA-2008AC03029

PATIENT
  Age: 21 Year
  Sex: Male

DRUGS (2)
  1. QUETIAPINE [Suspect]
     Indication: BIPOLAR DISORDER
  2. QUETIAPINE [Suspect]
     Indication: DEPRESSION

REACTIONS (1)
  - HEPATITIS [None]
